FAERS Safety Report 9915101 (Version 1)
Quarter: 2014Q1

REPORT INFORMATION
  Report Type: Report from Study
  Country: BE (occurrence: BE)
  Receive Date: 20140220
  Receipt Date: 20140220
  Transmission Date: 20141002
  Serious: Yes (Hospitalization, Other)
  Sender: FDA-Public Use
  Company Number: BE-ASTRAZENECA-2014SE10777

PATIENT
  Age: 69 Year
  Sex: Female

DRUGS (6)
  1. TICAGRELOR [Suspect]
     Indication: ACUTE CORONARY SYNDROME
     Route: 048
     Dates: start: 20131115, end: 20131224
  2. ACETYLSALICYLIC ACID [Suspect]
     Indication: ACUTE CORONARY SYNDROME
     Route: 048
  3. OXYGEN THERAPY [Concomitant]
  4. ENOXAPARIN [Concomitant]
  5. CLOPIDOGREL [Concomitant]
  6. AMOXICLAV [Concomitant]
     Dosage: 875

REACTIONS (1)
  - Respiratory failure [Not Recovered/Not Resolved]
